FAERS Safety Report 5383055-X (Version None)
Quarter: 2007Q3

REPORT INFORMATION
  Report Type: 
  Country: None (occurrence: None)
  Receive Date: 20070710
  Receipt Date: 20070702
  Transmission Date: 20080115
  Serious: Yes (Hospitalization)
  Sender: FDA-Public Use
  Company Number: HQWYE206015MAY07

PATIENT
  Sex: Male
  Weight: 68 kg

DRUGS (4)
  1. TACROLIMUS [Suspect]
     Indication: PROPHYLAXIS AGAINST TRANSPLANT REJECTION
     Route: 048
     Dates: start: 20070317
  2. INSULATARD [Concomitant]
     Indication: DIABETES MELLITUS
     Dosage: DOSE DEPENDENT ON LEVEL OF GLYCEMIA
     Route: 065
  3. ZOVIRAX [Concomitant]
     Indication: PROPHYLAXIS
     Route: 048
     Dates: start: 20070325
  4. BACTRIM DS [Concomitant]
     Indication: PROPHYLAXIS
     Dosage: 1 GRAM/DAY
     Route: 048
     Dates: start: 20070325

REACTIONS (1)
  - ASCITES [None]
